FAERS Safety Report 5345368-7 (Version None)
Quarter: 2007Q2

REPORT INFORMATION
  Report Type: 
  Country: None (occurrence: None)
  Receive Date: 20070605
  Receipt Date: 20070525
  Transmission Date: 20071010
  Serious: Yes (Other)
  Sender: FDA-Public Use
  Company Number: PHBS2007IT08973

PATIENT
  Age: 69 Year
  Sex: Female

DRUGS (4)
  1. ZOLEDRONIC ACID [Suspect]
     Indication: MULTIPLE MYELOMA
  2. PAMIDRONATE DISODIUM [Suspect]
     Indication: MULTIPLE MYELOMA
  3. MELPHALAN [Concomitant]
     Indication: MULTIPLE MYELOMA
  4. PREDNISONE TAB [Concomitant]
     Indication: MULTIPLE MYELOMA

REACTIONS (3)
  - BONE DEBRIDEMENT [None]
  - DENTAL OPERATION [None]
  - OSTEONECROSIS [None]
